FAERS Safety Report 8833806 (Version 1)
Quarter: 2012Q4

REPORT INFORMATION
  Report Type: 
  Country: US (occurrence: US)
  Receive Date: 20121011
  Receipt Date: 20121011
  Transmission Date: 20130627
  Serious: No
  Sender: FDA-Public Use
  Company Number: US-009507513-1210USA003878

PATIENT
  Age: 51 Year
  Sex: Female

DRUGS (3)
  1. NUVARING [Suspect]
     Indication: CONTRACEPTION
     Dosage: 1 ring/Every 28 days
     Route: 067
     Dates: start: 200010
  2. VITAMINS (UNSPECIFIED) [Concomitant]
  3. ZYRTEC [Concomitant]

REACTIONS (2)
  - Medical device discomfort [Recovering/Resolving]
  - Device expulsion [Recovering/Resolving]
